FAERS Safety Report 13693377 (Version 2)
Quarter: 2017Q3

REPORT INFORMATION
  Report Type: Spontaneous
  Country: US (occurrence: US)
  Receive Date: 20170627
  Receipt Date: 20170808
  Transmission Date: 20171127
  Serious: Yes (Other)
  Sender: FDA-Public Use
  Company Number: US-JNJFOC-20170621013

PATIENT
  Age: 45 Year
  Sex: Female

DRUGS (1)
  1. DOXORUBICIN HYDROCHLORIDE. [Suspect]
     Active Substance: DOXORUBICIN HYDROCHLORIDE
     Indication: OVARIAN CANCER STAGE III
     Route: 065

REACTIONS (3)
  - Oedema peripheral [Unknown]
  - Pericardial effusion [Recovered/Resolved]
  - Lethargy [Unknown]
